FAERS Safety Report 6581164-0 (Version None)
Quarter: 2010Q1

REPORT INFORMATION
  Report Type: 
  Country: None (occurrence: None)
  Receive Date: 20100215
  Receipt Date: 20100205
  Transmission Date: 20100710
  Serious: Yes (Other)
  Sender: FDA-Public Use
  Company Number: US-MYLANLABS-2009S1022089

PATIENT
  Age: 42 Year
  Sex: Female
  Weight: 61.24 kg

DRUGS (4)
  1. AMNESTEEM [Suspect]
     Indication: ACNE
     Route: 048
     Dates: start: 20090701
  2. AMNESTEEM [Suspect]
     Route: 048
     Dates: start: 20080911, end: 20091120
  3. ISOTRETINOIN [Suspect]
     Indication: ACNE
     Route: 048
     Dates: start: 20080911, end: 20091120
  4. ZYRTEC [Concomitant]

REACTIONS (3)
  - HEAD INJURY [None]
  - HEADACHE [None]
  - LHERMITTE'S SIGN [None]
